FAERS Safety Report 13947736 (Version 1)
Quarter: 2017Q3

REPORT INFORMATION
  Report Type: Report from Study
  Country: FR (occurrence: FR)
  Receive Date: 20170908
  Receipt Date: 20170908
  Transmission Date: 20171128
  Serious: Yes (Life-Threatening, Other)
  Sender: FDA-Public Use
  Company Number: FR-ALVOGEN-2017-ALVOGEN-093389

PATIENT
  Age: 74 Year
  Sex: Male

DRUGS (2)
  1. STREPTOZOCIN [Suspect]
     Active Substance: STREPTOZOCIN
     Indication: PANCREATIC NEUROENDOCRINE TUMOUR
     Dosage: DS (550 MG/M2)
  2. DOXORUBICIN [Suspect]
     Active Substance: DOXORUBICIN
     Indication: PANCREATIC NEUROENDOCRINE TUMOUR
     Dosage: DS (550 MG/M2)

REACTIONS (4)
  - Cardiac failure [Unknown]
  - Toxicity to various agents [Unknown]
  - Conduction disorder [Unknown]
  - Left ventricular dysfunction [Unknown]
